FAERS Safety Report 5333508-5 (Version None)
Quarter: 2007Q2

REPORT INFORMATION
  Report Type: 
  Country: None (occurrence: None)
  Receive Date: 20070308
  Receipt Date: 20061115
  Transmission Date: 20071010
  Serious: No
  Sender: FDA-Public Use
  Company Number: 2006-BP-13382BP

PATIENT
  Age: 73 Year
  Sex: Male

DRUGS (5)
  1. SPIRIVA [Suspect]
     Indication: EMPHYSEMA
     Dosage: 18 MCG (18 MCG, 1 IN 1 D) IH
     Route: 055
     Dates: start: 20050101
  2. OXYGEN (OXYGEN) [Concomitant]
  3. COMBIVENT (COMBIVENT /01261001/ ) [Concomitant]
  4. ALBUTEROL [Concomitant]
  5. AEROBID [Concomitant]

REACTIONS (1)
  - DYSPNOEA [None]
